FAERS Safety Report 9291179 (Version 1)
Quarter: 2013Q2

REPORT INFORMATION
  Report Type: Spontaneous
  Country: CA (occurrence: CA)
  Receive Date: 20130515
  Receipt Date: 20130515
  Transmission Date: 20140414
  Serious: Yes (Hospitalization, Other)
  Sender: FDA-Public Use
  Company Number: CA-BAYER-2012-094590

PATIENT
  Age: 82 Year
  Sex: Male

DRUGS (8)
  1. ADALAT [Suspect]
     Indication: HYPERTENSION
     Dosage: UNK
  2. ACETYLSALICYLIC ACID [Interacting]
     Indication: ACUTE CORONARY SYNDROME
     Dosage: 1 DF, QD
     Route: 048
     Dates: start: 20120313
  3. PLAVIX [Interacting]
     Indication: ACUTE CORONARY SYNDROME
     Dosage: 1 DF, QD
     Route: 048
     Dates: start: 20120313
  4. ATORVASTATIN CALCIUM [Concomitant]
     Dosage: UNK
     Dates: start: 20120313
  5. HEPARIN SODIUM [Concomitant]
     Dosage: UNK
     Route: 042
     Dates: start: 20120312, end: 20120313
  6. LASIX [Concomitant]
     Dosage: UNK
     Dates: start: 20120313
  7. METOPROLOL [Concomitant]
     Dosage: UNK
     Dates: start: 20120312
  8. PERINDOPRIL [Concomitant]
     Dosage: UNK
     Dates: start: 20120314

REACTIONS (3)
  - Lower gastrointestinal haemorrhage [Recovered/Resolved]
  - Diverticulum intestinal haemorrhagic [Recovered/Resolved]
  - Orthostatic hypotension [Recovered/Resolved]
